FAERS Safety Report 7061430-5 (Version None)
Quarter: 2010Q4

REPORT INFORMATION
  Report Type: 
  Country: None (occurrence: None)
  Receive Date: 20101026
  Receipt Date: 20101018
  Transmission Date: 20110411
  Serious: Yes (Death, Hospitalization)
  Sender: FDA-Public Use
  Company Number: US-SANOFI-AVENTIS-2010SA064325

PATIENT
  Age: 59 Year
  Sex: Female

DRUGS (7)
  1. LOVENOX [Suspect]
     Indication: ANTICOAGULANT THERAPY
     Route: 058
     Dates: start: 20071113, end: 20071119
  2. HEPARIN [Suspect]
     Dosage: DOSE:5000 UNIT(S)
     Route: 058
     Dates: start: 20071112, end: 20071113
  3. HEPARIN [Suspect]
     Indication: INTRAVENOUS CATHETER MANAGEMENT
     Dosage: DOSE:5000 UNIT(S)
     Route: 058
     Dates: start: 20071112, end: 20071113
  4. HEPARIN [Suspect]
     Dosage: DOSE:100 UNIT(S)
     Dates: start: 20071124, end: 20071129
  5. HEPARIN [Suspect]
     Dosage: DOSE:100 UNIT(S)
     Dates: start: 20071124, end: 20071129
  6. COUMADIN [Suspect]
     Indication: ANTICOAGULANT THERAPY
     Route: 048
     Dates: start: 20071115, end: 20071123
  7. ALBUTEROL [Concomitant]

REACTIONS (21)
  - ANAEMIA [None]
  - BLOOD PRESSURE IMMEASURABLE [None]
  - CARDIAC ARREST [None]
  - CHEMICAL PERITONITIS [None]
  - CHRONIC OBSTRUCTIVE PULMONARY DISEASE [None]
  - COMA [None]
  - ENCEPHALOPATHY [None]
  - FALL [None]
  - ISCHAEMIC HEPATITIS [None]
  - MULTI-ORGAN FAILURE [None]
  - RENAL FAILURE ACUTE [None]
  - RESPIRATORY FAILURE [None]
  - RETROPERITONEAL HAEMORRHAGE [None]
  - SEPTIC SHOCK [None]
  - SHOCK HAEMORRHAGIC [None]
  - SPLENIC RUPTURE [None]
  - SPUTUM CULTURE POSITIVE [None]
  - STREPTOCOCCUS TEST POSITIVE [None]
  - THROMBOCYTOPENIA [None]
  - URINARY TRACT INFECTION [None]
  - VOMITING [None]
